FAERS Safety Report 21203521 (Version 3)
Quarter: 2025Q1

REPORT INFORMATION
  Report Type: Report from Study
  Country: JP (occurrence: JP)
  Receive Date: 20220811
  Receipt Date: 20250213
  Transmission Date: 20250409
  Serious: Yes (Death, Life-Threatening, Hospitalization, Other)
  Sender: PFIZER
  Company Number: JP-PFIZER INC-PV202200040941

PATIENT
  Age: 1 Month
  Sex: Female
  Weight: 3.34 kg

DRUGS (28)
  1. SIROLIMUS [Suspect]
     Active Substance: SIROLIMUS
     Indication: Lymphangioma
     Dosage: 0.04 MG,1 IN 1 D
     Route: 048
     Dates: start: 20220407, end: 20220419
  2. SIROLIMUS [Suspect]
     Active Substance: SIROLIMUS
     Dosage: 0.08 MG,1 D
     Route: 048
     Dates: start: 20220420, end: 20220508
  3. SIROLIMUS [Suspect]
     Active Substance: SIROLIMUS
     Dosage: 0.1 MG,1 D
     Route: 048
     Dates: start: 20220509, end: 20220513
  4. SIROLIMUS [Suspect]
     Active Substance: SIROLIMUS
     Dosage: 0.014 MG/KG, 1 D
     Route: 065
  5. PREDNISOLONE [Suspect]
     Active Substance: PREDNISOLONE
     Indication: Ascites
     Route: 065
  6. DOPAMINE HYDROCHLORIDE [Concomitant]
     Active Substance: DOPAMINE HYDROCHLORIDE
     Route: 041
     Dates: start: 20220307, end: 20220513
  7. OCTREOTIDE [Concomitant]
     Active Substance: OCTREOTIDE
     Indication: Lymphangioma
     Route: 058
     Dates: start: 20220307, end: 20220513
  8. PREDNISOLONE ACETATE [Concomitant]
     Active Substance: PREDNISOLONE ACETATE
     Indication: Lymphangioma
     Route: 065
     Dates: start: 20220228, end: 20220513
  9. FAMOTIDINE [Concomitant]
     Active Substance: FAMOTIDINE
     Route: 065
     Dates: start: 20220228, end: 20220506
  10. FAMOTIDINE [Concomitant]
     Active Substance: FAMOTIDINE
     Route: 065
     Dates: start: 20220307, end: 20220506
  11. PHENOBARBITAL [Concomitant]
     Active Substance: PHENOBARBITAL
     Indication: Sedation
     Route: 065
     Dates: start: 20220227, end: 20220513
  12. PHENOBARBITAL [Concomitant]
     Active Substance: PHENOBARBITAL
     Route: 065
     Dates: start: 20220301, end: 20220513
  13. BISOPROLOL FUMARATE [Concomitant]
     Active Substance: BISOPROLOL FUMARATE
     Route: 048
     Dates: start: 20220316, end: 20220407
  14. VICCILLIN S [AMPICILLIN SODIUM;CLOXACILLIN SODIUM] [Concomitant]
     Route: 065
     Dates: start: 20220226, end: 20220512
  15. LEVOTHYROXINE SODIUM [Concomitant]
     Active Substance: LEVOTHYROXINE SODIUM
     Route: 048
     Dates: start: 20220425, end: 20220512
  16. SULFAMETHOXAZOLE\TRIMETHOPRIM [Concomitant]
     Active Substance: SULFAMETHOXAZOLE\TRIMETHOPRIM
     Indication: Opportunistic infection prophylaxis
     Route: 048
     Dates: start: 20220503, end: 20220507
  17. SULFAMETHOXAZOLE\TRIMETHOPRIM [Concomitant]
     Active Substance: SULFAMETHOXAZOLE\TRIMETHOPRIM
     Indication: Prophylaxis
  18. HEPARINOID [Concomitant]
     Route: 065
     Dates: start: 20220329, end: 20220513
  19. HEPARIN SODIUM [Concomitant]
     Active Substance: HEPARIN SODIUM
     Indication: Prophylaxis
     Route: 065
     Dates: start: 20220225, end: 20220513
  20. FENTANYL [Concomitant]
     Active Substance: FENTANYL
     Indication: Lymphangioma
     Route: 065
     Dates: start: 20220401, end: 20220513
  21. MIDAZOLAM [Concomitant]
     Active Substance: MIDAZOLAM
     Indication: Sedation
     Route: 065
     Dates: start: 20220402, end: 20220421
  22. DOBUTAMINE [Concomitant]
     Active Substance: DOBUTAMINE HYDROCHLORIDE
     Route: 041
     Dates: start: 20220407, end: 20220411
  23. FUROSEMIDE [Concomitant]
     Active Substance: FUROSEMIDE
     Route: 065
     Dates: start: 20220325, end: 20220513
  24. CEFMETAZOLE [Concomitant]
     Active Substance: CEFMETAZOLE
     Route: 065
     Dates: start: 20220413, end: 20220420
  25. CANRENOATE POTASSIUM [Concomitant]
     Active Substance: CANRENOATE POTASSIUM
     Route: 042
     Dates: start: 20220416, end: 20220418
  26. PITRESSIN [Concomitant]
     Active Substance: VASOPRESSIN
     Route: 065
     Dates: start: 20220509, end: 20220513
  27. MORPHINE HYDROCHLORIDE [Concomitant]
     Active Substance: MORPHINE HYDROCHLORIDE
     Indication: Lymphangioma
     Route: 065
     Dates: start: 20220503, end: 20220503
  28. OMEPRAZOLE [Concomitant]
     Active Substance: OMEPRAZOLE
     Route: 065
     Dates: start: 20220507, end: 20220513

REACTIONS (21)
  - Hypertrophic cardiomyopathy [Fatal]
  - Condition aggravated [Fatal]
  - Blood pressure decreased [Recovering/Resolving]
  - Hypogammaglobulinaemia [Not Recovered/Not Resolved]
  - Hypomagnesaemia [Not Recovered/Not Resolved]
  - Hypoxia [Not Recovered/Not Resolved]
  - Circulatory collapse [Not Recovered/Not Resolved]
  - Respiratory failure [Not Recovered/Not Resolved]
  - Atelectasis [Not Recovered/Not Resolved]
  - Sepsis [Recovering/Resolving]
  - Bacterial infection [Recovering/Resolving]
  - Blood pressure decreased [Not Recovered/Not Resolved]
  - Urinary tract infection [Recovering/Resolving]
  - Enterococcus test positive [Recovering/Resolving]
  - Bradycardia [Not Recovered/Not Resolved]
  - Acidosis [Not Recovered/Not Resolved]
  - Gastrointestinal haemorrhage [Not Recovered/Not Resolved]
  - Oliguria [Recovering/Resolving]
  - Platelet count decreased [Recovering/Resolving]
  - Supraventricular extrasystoles [Recovering/Resolving]
  - Product administered to patient of inappropriate age [Unknown]

NARRATIVE: CASE EVENT DATE: 20220407
